FAERS Safety Report 4322431-0 (Version None)
Quarter: 2004Q1

REPORT INFORMATION
  Report Type: 
  Country: None (occurrence: None)
  Receive Date: 20040319
  Receipt Date: 20040309
  Transmission Date: 20041129
  Serious: Yes (Hospitalization, Other)
  Sender: FDA-Public Use
  Company Number: 2004202786IL

PATIENT
  Age: 24 Year
  Sex: Female

DRUGS (8)
  1. HEPARIN SODIUM (HEPARIN SODIUM) SOLUTION, STERILE [Suspect]
     Dosage: 5000 U, BID
  2. ASPIRIN [Suspect]
     Dosage: 0.2 G, DAILY
  3. FOLIC ACID [Suspect]
     Dosage: 5 MG, DAILY
  4. FRAGMIN [Suspect]
     Dosage: 5000 U, DAILY, SUBCUTANEOUS
     Route: 058
  5. DELTA-CORTEF [Suspect]
     Dosage: 40 MG, DAILY, ORAL
     Route: 048
  6. ENOXAPARIN SODIUM [Suspect]
     Dosage: 40 MG, DAILY, SUBCUTANEOUS
     Route: 058
  7. ORGARAN(DANAPAROID SODIUM) [Suspect]
     Dosage: 750 U, BID, SUBCUTANEOUS
     Route: 058
  8. ENOXAPARIN SODIUM [Suspect]
     Dosage: 40 MG, DAILY, SUBCUTANEOUS
     Route: 058

REACTIONS (9)
  - ABORTION MISSED [None]
  - COMPLICATIONS OF MATERNAL EXPOSURE TO THERAPEUTIC DRUGS [None]
  - DRUG HYPERSENSITIVITY [None]
  - INJECTION SITE REACTION [None]
  - INJECTION SITE URTICARIA [None]
  - MATERNAL DRUGS AFFECTING FOETUS [None]
  - PREGNANCY [None]
  - PRURITUS [None]
  - REFUSAL OF TREATMENT BY PATIENT [None]
